FAERS Safety Report 4870098-5 (Version None)
Quarter: 2005Q4

REPORT INFORMATION
  Report Type: 
  Country: None (occurrence: None)
  Receive Date: 20051227
  Receipt Date: 20051212
  Transmission Date: 20060501
  Serious: Yes (Hospitalization)
  Sender: FDA-Public Use
  Company Number: 200512IM000811

PATIENT
  Age: 47 Year
  Sex: Male
  Weight: 72.5755 kg

DRUGS (6)
  1. INFERGEN [Suspect]
     Indication: HEPATITIS C
     Dosage: 15 UG, QD, SUBCUTANEOUS
     Route: 058
     Dates: start: 20050221, end: 20051207
  2. RIBAVIRIN [Concomitant]
  3. WELLBUTRIN [Concomitant]
  4. PRILOSEC [Concomitant]
  5. MAGNESIUM [Concomitant]
  6. PROGRAF [Concomitant]

REACTIONS (7)
  - ASTHENIA [None]
  - BONE PAIN [None]
  - DEPRESSION [None]
  - FEELING ABNORMAL [None]
  - GASTROINTESTINAL INFECTION [None]
  - HEPATIC CIRRHOSIS [None]
  - PANCREATITIS [None]
